FAERS Safety Report 9205293 (Version 2)
Quarter: 2013Q2

REPORT INFORMATION
  Report Type: Spontaneous
  Country: US (occurrence: US)
  Receive Date: 20130402
  Receipt Date: 20130515
  Transmission Date: 20140414
  Serious: Yes (Death, Other)
  Sender: FDA-Public Use
  Company Number: US-PFIZER INC-2013101506

PATIENT
  Age: 85 Year
  Sex: Male
  Weight: 79.82 kg

DRUGS (17)
  1. REVATIO [Suspect]
     Indication: PULMONARY HYPERTENSION
     Dosage: 10 MG, 3X/DAY
     Dates: start: 201210
  2. REVATIO [Suspect]
     Dosage: 40 MG, 3X/DAY
     Route: 048
     Dates: start: 20121023
  3. ASPIRIN [Concomitant]
     Dosage: 81 MG, 1X/DAY
     Route: 048
  4. FISH OIL [Concomitant]
     Dosage: 2400 MG, 1X/DAY (1200 MG, TAKE 2 DAILY)
     Route: 048
  5. FUROSEMIDE [Concomitant]
     Dosage: 40 MG, 2X/DAY
  6. FLAX ORAL OIL [Concomitant]
     Dosage: UNK, TAKE AS DIRECTED
  7. LISINOPRIL [Concomitant]
     Dosage: 10 MG, 1X/DAY
     Route: 048
  8. METFORMIN HYDROCHLORIDE [Concomitant]
     Dosage: 500 MG, (TAKE 1 TABLET EVERY 12 HOURS WITH FOOD)
     Route: 048
  9. MULTIPLE VITAMINS [Concomitant]
     Dosage: 1 DF, 1X/DAY
     Route: 048
  10. PROAIR HFA [Concomitant]
     Dosage: 108 (90 BASE) MCG/ACT INHALATION AEROSOL SOLUTION: INHALE 2 PUFFS EVERY 4-6 HOURS AS NEEDED
     Route: 055
  11. SIMVASTATIN [Concomitant]
     Dosage: 80 MG, 1X/DAY (BEDTIME)
     Route: 048
  12. SPIRONOLACTONE [Concomitant]
     Dosage: 25 MG, 1X/DAY
     Route: 048
  13. SYMBICORT [Concomitant]
     Dosage: UNK, 160-4.5 MCG/ACT INHALATION AEROSOL: 2PFF BID
     Route: 055
  14. TRACLEER [Concomitant]
     Dosage: 62.5 MG, 2X/DAY
     Route: 048
  15. TRICOR [Concomitant]
     Dosage: 145 MG, 1X/DAY
     Route: 048
  16. VITAMIN D3 [Concomitant]
     Dosage: 1000 IU, 1X/DAY
     Route: 048
  17. WARFARIN SODIUM [Concomitant]
     Indication: ANTICOAGULANT THERAPY
     Dosage: 5 MG, (AS DIRECTED BY ANTICOAG CLINIC)
     Route: 048

REACTIONS (9)
  - Death [Fatal]
  - Pulmonary hypertension [Unknown]
  - Right ventricular failure [Unknown]
  - Local swelling [Unknown]
  - Venous pressure jugular increased [Unknown]
  - Blood pressure decreased [Unknown]
  - Blood urea increased [Unknown]
  - Blood alkaline phosphatase decreased [Unknown]
  - Glomerular filtration rate decreased [Unknown]
